FAERS Safety Report 12802346 (Version 1)
Quarter: 2016Q4

REPORT INFORMATION
  Report Type: Spontaneous
  Country: US (occurrence: US)
  Receive Date: 20161003
  Receipt Date: 20161003
  Transmission Date: 20170207
  Serious: No
  Sender: FDA-Public Use
  Company Number: US-ASTRAZENECA-2016SF01883

PATIENT
  Age: 54 Year
  Sex: Male

DRUGS (4)
  1. SPIRIVA [Concomitant]
     Active Substance: TIOTROPIUM BROMIDE MONOHYDRATE
  2. ALBUTEROL VIA NEBULIZER [Concomitant]
  3. FLONASE [Concomitant]
     Active Substance: FLUTICASONE PROPIONATE
  4. SYMBICORT [Suspect]
     Active Substance: BUDESONIDE\FORMOTEROL FUMARATE DIHYDRATE
     Indication: ASTHMA
     Dosage: SYMBICORT 160/4.5 MCG 120 INHALATIONS
     Route: 055

REACTIONS (2)
  - Blood glucose increased [Unknown]
  - Overweight [Unknown]
